FAERS Safety Report 11769673 (Version 3)
Quarter: 2016Q1

REPORT INFORMATION
  Report Type: Spontaneous
  Country: BR (occurrence: BR)
  Receive Date: 20151123
  Receipt Date: 20160219
  Transmission Date: 20160525
  Serious: Yes (Other)
  Sender: FDA-Public Use
  Company Number: PHHY2015BR094514

PATIENT
  Sex: Female
  Weight: 43 kg

DRUGS (3)
  1. ARADOIS [Concomitant]
     Active Substance: LOSARTAN POTASSIUM
     Indication: HYPERTENSION
     Dosage: 2 DF, UNK
     Route: 048
  2. TYLENOL [Concomitant]
     Active Substance: ACETAMINOPHEN
     Indication: MYALGIA
     Dosage: 1 DF, UNK
     Route: 048
     Dates: start: 2009
  3. ACLASTA [Suspect]
     Active Substance: ZOLEDRONIC ACID
     Indication: OSTEOPOROSIS
     Dosage: 1 DF (5MG/100ML), UNK
     Route: 065

REACTIONS (9)
  - Malaise [Unknown]
  - Pain [Unknown]
  - Renal pain [Unknown]
  - Chills [Unknown]
  - Headache [Unknown]
  - Eye pain [Unknown]
  - Urinary tract infection [Not Recovered/Not Resolved]
  - Palpitations [Unknown]
  - Urinary tract disorder [Unknown]

NARRATIVE: CASE EVENT DATE: 2008
